FAERS Safety Report 4562724-5 (Version None)
Quarter: 2005Q1

REPORT INFORMATION
  Report Type: 
  Country: None (occurrence: None)
  Receive Date: 20050127
  Receipt Date: 20050118
  Transmission Date: 20050727
  Serious: Yes (Hospitalization)
  Sender: FDA-Public Use
  Company Number: DE-BRISTOL-MYERS SQUIBB COMPANY-12829164

PATIENT
  Age: 46 Year
  Sex: Male
  Weight: 89 kg

DRUGS (2)
  1. REYATAZ [Suspect]
     Indication: HIV INFECTION
     Route: 048
     Dates: start: 20041020, end: 20041206
  2. LOPINAVIR [Concomitant]
     Indication: HIV INFECTION
     Dosage: DOSAGE FORM: TABLETS
     Route: 048

REACTIONS (1)
  - RENAL FAILURE [None]
